FAERS Safety Report 4862630-2 (Version None)
Quarter: 2005Q4

REPORT INFORMATION
  Report Type: 
  Country: None (occurrence: None)
  Receive Date: 20051219
  Receipt Date: 20051219
  Transmission Date: 20060501
  Serious: No
  Sender: FDA-Public Use
  Company Number: None

PATIENT
  Age: 47 Year
  Sex: Female
  Weight: 61.2356 kg

DRUGS (2)
  1. CYMBALTA [Suspect]
     Indication: ANXIETY
     Dosage: 90MG  ONCE A DAY  PO
     Route: 048
     Dates: start: 20040901
  2. CYMBALTA [Suspect]
     Indication: DEPRESSION
     Dosage: 90MG  ONCE A DAY  PO
     Route: 048
     Dates: start: 20040901

REACTIONS (6)
  - ALOPECIA [None]
  - CHANGE OF BOWEL HABIT [None]
  - CONSTIPATION [None]
  - DIARRHOEA [None]
  - HYPOTRICHOSIS [None]
  - WEIGHT INCREASED [None]
